FAERS Safety Report 9770075 (Version 2)
Quarter: 2013Q4

REPORT INFORMATION
  Report Type: Spontaneous
  Country: US (occurrence: US)
  Receive Date: 20131218
  Receipt Date: 20131218
  Transmission Date: 20140711
  Serious: No
  Sender: FDA-Public Use
  Company Number: US-VERTEX PHARMACEUTICALS INC-AE-2011-000788

PATIENT
  Age: 54 Year
  Sex: Female
  Weight: 58.18 kg

DRUGS (5)
  1. INCIVEK [Suspect]
     Indication: HEPATITIS C
     Dates: start: 20110803
  2. RIBAVIRIN [Concomitant]
     Indication: HEPATITIS C
     Dates: start: 20110803
  3. PEGASYS [Concomitant]
     Indication: HEPATITIS C
     Dates: start: 20110803
  4. JANUMET [Concomitant]
     Indication: DIABETES MELLITUS
  5. DITROPAN [Concomitant]
     Indication: HYPERTONIC BLADDER
     Route: 048

REACTIONS (3)
  - Parosmia [Not Recovered/Not Resolved]
  - Eructation [Not Recovered/Not Resolved]
  - Nausea [Not Recovered/Not Resolved]
